FAERS Safety Report 12169145 (Version 4)
Quarter: 2016Q2

REPORT INFORMATION
  Report Type: Report from Study
  Country: US (occurrence: US)
  Receive Date: 20160310
  Receipt Date: 20160415
  Transmission Date: 20160815
  Serious: Yes (Other)
  Sender: FDA-Public Use
  Company Number: US-MYLANLABS-2016M1009627

PATIENT

DRUGS (3)
  1. CLOZAPINE TABLETS, USP [Suspect]
     Active Substance: CLOZAPINE
     Indication: PSYCHOTIC DISORDER
     Dosage: 50 MG, TID
     Route: 048
     Dates: start: 20160107, end: 20160226
  2. HALDOL [Concomitant]
     Active Substance: HALOPERIDOL
     Dosage: 10 MG, QID
     Route: 048
  3. CLOZAPINE TABLETS, USP [Suspect]
     Active Substance: CLOZAPINE
     Indication: PSYCHOTIC DISORDER
     Dosage: 100 MG, TID
     Route: 048
     Dates: start: 20160107, end: 20160226

REACTIONS (1)
  - Neutropenia [Recovered/Resolved]

NARRATIVE: CASE EVENT DATE: 20160226
